FAERS Safety Report 14275941 (Version 2)
Quarter: 2018Q1

REPORT INFORMATION
  Report Type: Spontaneous
  Country: JP (occurrence: JP)
  Receive Date: 20171212
  Receipt Date: 20180122
  Transmission Date: 20180508
  Serious: Yes (Other)
  Sender: FDA-Public Use
  Company Number: JP-LANNETT COMPANY, INC.-JP-2017LAN001245

PATIENT
  Sex: Female
  Weight: 40 kg

DRUGS (4)
  1. ARIPIPRAZOLE. [Suspect]
     Active Substance: ARIPIPRAZOLE
     Dosage: 12 MG, UNK
     Route: 048
     Dates: start: 20091119, end: 20100212
  2. ABILIFY [Suspect]
     Active Substance: ARIPIPRAZOLE
     Indication: SCHIZOPHRENIA
     Dosage: 12 MG, UNK
     Route: 048
     Dates: start: 20090731, end: 20090910
  3. ZOPICLONE [Suspect]
     Active Substance: ZOPICLONE
     Indication: INSOMNIA
     Dosage: 7.5 MG, UNK
     Route: 048
     Dates: end: 20100212
  4. ARIPIPRAZOLE. [Suspect]
     Active Substance: ARIPIPRAZOLE
     Indication: SCHIZOPHRENIA
     Dosage: 24 MG, UNK
     Route: 048
     Dates: start: 20090911, end: 20091118

REACTIONS (1)
  - Abortion [Recovering/Resolving]

NARRATIVE: CASE EVENT DATE: 201003
